FAERS Safety Report 5847073-7 (Version None)
Quarter: 2008Q3

REPORT INFORMATION
  Report Type: 
  Country: None (occurrence: None)
  Receive Date: 20080815
  Receipt Date: 20080807
  Transmission Date: 20090109
  Serious: Yes (Other)
  Sender: FDA-Public Use
  Company Number: US-PFIZER INC-2008066324

PATIENT
  Sex: Male

DRUGS (3)
  1. CELEBREX [Suspect]
     Indication: ARTHRITIS
  2. CORTISONE [Concomitant]
  3. HYALGAN [Concomitant]

REACTIONS (2)
  - ARTHRITIS [None]
  - DRUG INEFFECTIVE [None]
